FAERS Safety Report 21776381 (Version 1)
Quarter: 2022Q4

REPORT INFORMATION
  Report Type: Other
  Country: CA (occurrence: None)
  Receive Date: 20221226
  Receipt Date: 20221226
  Transmission Date: 20230113
  Serious: Yes (Other)
  Sender: FDA-Public Use
  Company Number: CA-ROCHE-2995918

PATIENT
  Sex: Female

DRUGS (33)
  1. ACTEMRA [Suspect]
     Active Substance: TOCILIZUMAB
     Indication: Giant cell arteritis
     Dosage: ON HOLD
     Route: 058
     Dates: start: 20200511, end: 2020
  2. ACTEMRA [Suspect]
     Active Substance: TOCILIZUMAB
     Route: 058
     Dates: start: 202108
  3. ACTEMRA [Suspect]
     Active Substance: TOCILIZUMAB
     Route: 058
     Dates: start: 20200511, end: 20210505
  4. BACLOFEN [Concomitant]
     Active Substance: BACLOFEN
  5. CETIRIZINE [Concomitant]
     Active Substance: CETIRIZINE HYDROCHLORIDE
  6. CITALOPRAM [Concomitant]
     Active Substance: CITALOPRAM HYDROBROMIDE
     Route: 048
  7. COENZYME Q10 [Concomitant]
     Active Substance: DIETARY SUPPLEMENT\UBIDECARENONE
  8. DEXAMETHASONE [Concomitant]
     Active Substance: DEXAMETHASONE
  9. DOCUSATE SODIUM [Concomitant]
     Active Substance: DOCUSATE SODIUM
     Route: 048
  10. EPIPEN [Concomitant]
     Active Substance: EPINEPHRINE
  11. ESTROGEL [Concomitant]
     Active Substance: ESTRADIOL
  12. EZETIMIBE [Concomitant]
     Active Substance: EZETIMIBE
  13. FOLIC ACID [Concomitant]
     Active Substance: FOLIC ACID
  14. FOSAMAX [Concomitant]
     Active Substance: ALENDRONATE SODIUM
  15. LASIX [Concomitant]
     Active Substance: FUROSEMIDE
  16. LITHIUM CARBONATE [Concomitant]
     Active Substance: LITHIUM CARBONATE
  17. LORAZEPAM [Concomitant]
     Active Substance: LORAZEPAM
     Dosage: AS REQUIRED
  18. LYRICA [Concomitant]
     Active Substance: PREGABALIN
     Dosage: TWO 150MG
     Route: 048
  19. METFORMIN [Concomitant]
     Active Substance: METFORMIN HYDROCHLORIDE
     Route: 065
  20. METOCLOPRAMIDE [Concomitant]
     Active Substance: METOCLOPRAMIDE
  21. MORPHINE [Concomitant]
     Active Substance: MORPHINE
     Indication: Pain
  22. NYSTATIN [Concomitant]
     Active Substance: NYSTATIN
  23. PANTOPRAZOLE SODIUM [Concomitant]
     Active Substance: PANTOPRAZOLE SODIUM
  24. PERCOCET [Concomitant]
     Active Substance: ACETAMINOPHEN\OXYCODONE HYDROCHLORIDE
     Dosage: ONE TABLET FOUR TIMES DAILY
  25. PLAVIX [Concomitant]
     Active Substance: CLOPIDOGREL BISULFATE
  26. PREDNISONE [Concomitant]
     Active Substance: PREDNISONE
     Route: 048
  27. PREDNISONE [Concomitant]
     Active Substance: PREDNISONE
     Route: 048
  28. SEROQUEL XR [Concomitant]
     Active Substance: QUETIAPINE FUMARATE
  29. SIMVASTATIN [Concomitant]
     Active Substance: SIMVASTATIN
  30. SPIRIVA RESPIMAT [Concomitant]
     Active Substance: TIOTROPIUM BROMIDE
     Dosage: TWO INHALATIONS TWICE DAILY
     Route: 055
  31. SULFATRIM [Concomitant]
     Active Substance: SULFAMETHOXAZOLE\TRIMETHOPRIM
  32. SYNTHROID [Concomitant]
     Active Substance: LEVOTHYROXINE SODIUM
     Route: 048
  33. PANTOPRAZOLE MAGNESIUM [Concomitant]
     Active Substance: PANTOPRAZOLE MAGNESIUM

REACTIONS (4)
  - Cataract [Unknown]
  - Mitral valve prolapse [Unknown]
  - Eye infection [Unknown]
  - Tooth disorder [Unknown]
